FAERS Safety Report 8078508-X (Version None)
Quarter: 2012Q1

REPORT INFORMATION
  Report Type: 
  Country: None (occurrence: None)
  Receive Date: 20120127
  Receipt Date: 20110314
  Transmission Date: 20120608
  Serious: No
  Sender: FDA-Public Use
  Company Number: PR-ABBOTT-11P-131-0711499-00

PATIENT
  Sex: Female
  Weight: 71.732 kg

DRUGS (1)
  1. HUMIRA [Suspect]
     Indication: RHEUMATOID ARTHRITIS
     Route: 058
     Dates: start: 20101108

REACTIONS (2)
  - RASH GENERALISED [None]
  - RASH [None]
